FAERS Safety Report 5333645-5 (Version None)
Quarter: 2007Q2

REPORT INFORMATION
  Report Type: 
  Country: None (occurrence: None)
  Receive Date: 20070524
  Receipt Date: 20070516
  Transmission Date: 20071010
  Serious: Yes (Other)
  Sender: FDA-Public Use
  Company Number: ES-JNJFOC-20070504138

PATIENT
  Age: 14 Year
  Sex: Male

DRUGS (3)
  1. REMICADE [Suspect]
     Dosage: 5.0 MG/KG EVERY 1.5-2 MONTHS.
     Route: 042
  2. REMICADE [Suspect]
     Indication: JUVENILE ARTHRITIS
     Route: 042
  3. METHOTREXATE [Concomitant]

REACTIONS (4)
  - INFUSION RELATED REACTION [None]
  - JUVENILE ARTHRITIS [None]
  - MYOCLONUS [None]
  - PYREXIA [None]
